FAERS Safety Report 7041061-3 (Version None)
Quarter: 2010Q4

REPORT INFORMATION
  Report Type: 
  Country: None (occurrence: None)
  Receive Date: 20101013
  Receipt Date: 20101004
  Transmission Date: 20110411
  Serious: Yes (Hospitalization)
  Sender: FDA-Public Use
  Company Number: FR-ASTRAZENECA-2010SE46649

PATIENT
  Age: 21967 Day
  Sex: Male

DRUGS (5)
  1. NEXIUM [Suspect]
     Route: 048
     Dates: start: 20100826, end: 20100905
  2. ACUPAN [Suspect]
     Dates: start: 20100823, end: 20100901
  3. ACUPAN [Suspect]
     Dates: end: 20100906
  4. TOPALGIC [Suspect]
     Dates: start: 20100826, end: 20100906
  5. VESANOID [Concomitant]

REACTIONS (3)
  - DISORIENTATION [None]
  - HALLUCINATION, VISUAL [None]
  - HYPONATRAEMIA [None]
